FAERS Safety Report 4278841-3 (Version None)
Quarter: 2004Q1

REPORT INFORMATION
  Report Type: 
  Country: None (occurrence: None)
  Receive Date: 20040126
  Receipt Date: 20030212
  Transmission Date: 20041129
  Serious: No
  Sender: FDA-Public Use
  Company Number: US-BRISTOL-MYERS SQUIBB COMPANY-12185765

PATIENT
  Sex: Female

DRUGS (1)
  1. FUNGIZONE [Suspect]

REACTIONS (1)
  - OVERDOSE [None]
